FAERS Safety Report 5324119-6 (Version None)
Quarter: 2007Q2

REPORT INFORMATION
  Report Type: 
  Country: None (occurrence: None)
  Receive Date: 20070514
  Receipt Date: 20060711
  Transmission Date: 20071010
  Serious: No
  Sender: FDA-Public Use
  Company Number: A0611798A

PATIENT
  Sex: Female

DRUGS (5)
  1. NABUMETONE [Suspect]
     Indication: RHEUMATOID ARTHRITIS
     Dosage: 2TAB PER DAY
     Route: 048
  2. UNSPECIFIED MEDICATION [Concomitant]
  3. LEVOTHYROXINE SODIUM [Concomitant]
  4. TRENTAL [Concomitant]
  5. ATENOLOL [Concomitant]

REACTIONS (1)
  - DIARRHOEA [None]
